FAERS Safety Report 16555346 (Version 1)
Quarter: 2019Q3

REPORT INFORMATION
  Report Type: Spontaneous
  Country: GB (occurrence: GB)
  Receive Date: 20190710
  Receipt Date: 20190710
  Transmission Date: 20191004
  Serious: Yes (Hospitalization)
  Sender: FDA-Public Use
  Company Number: GB-TEVA-2019-GB-1074544

PATIENT
  Age: 41 Year
  Sex: Female

DRUGS (9)
  1. FERROUS GLUCONATE [Concomitant]
     Active Substance: FERROUS GLUCONATE
     Dosage: 600  MILLIGRAM FOR EVERY 1 DAYS
     Route: 048
  2. COAL TAR. [Concomitant]
     Active Substance: COAL TAR
     Route: 061
  3. ACICLOVIR [Suspect]
     Active Substance: ACYCLOVIR
     Indication: VARICELLA ZOSTER VIRUS INFECTION
     Route: 065
  4. FLUCLOXACILLIN [Suspect]
     Active Substance: FLUCLOXACILLIN
     Indication: IMPETIGO
     Dosage: 4 GRAM FOR EVERY 1 DAYS
     Route: 042
     Dates: start: 20190606, end: 20190608
  5. DERMOL [Concomitant]
     Active Substance: BENZALKONIUM CHLORIDE\CHLORHEXIDINE HYDROCHLORIDE\ISOPROPYL MYRISTATE\PARAFFIN
     Route: 061
  6. BETAMETHASONE AND CALCIPOTRIOL [Concomitant]
     Dosage: CALCIPOTRIOL 0.005% / BETAMETHASONE DIPROPIONATE 0.05%
     Route: 061
  7. PROMETHAZINE HYDROCHLORIDE. [Suspect]
     Active Substance: PROMETHAZINE HYDROCHLORIDE
     Indication: PRURITUS
     Dosage: 1-2 AT NIGHT.
     Route: 048
     Dates: end: 20190608
  8. SERTRALINE [Suspect]
     Active Substance: SERTRALINE HYDROCHLORIDE
     Dosage: 50 MILLIGRAM FOR EVERY 1 DAY
     Route: 048
     Dates: start: 20190501, end: 20190605
  9. DESOGESTREL [Concomitant]
     Active Substance: DESOGESTREL
     Dosage: 75 MICROGRAM FOR EVERY 1 DAYS
     Route: 048

REACTIONS (2)
  - Pustular psoriasis [Not Recovered/Not Resolved]
  - Liver function test abnormal [Recovering/Resolving]
